FAERS Safety Report 15855383 (Version 2)
Quarter: 2019Q2

REPORT INFORMATION
  Report Type: Spontaneous
  Country: US (occurrence: US)
  Receive Date: 20190122
  Receipt Date: 20190514
  Transmission Date: 20190711
  Serious: No
  Sender: FDA-Public Use
  Company Number: US-PFIZER INC-2019025149

PATIENT
  Age: 58 Year
  Sex: Female
  Weight: 107 kg

DRUGS (3)
  1. IBRANCE [Suspect]
     Active Substance: PALBOCICLIB
     Dosage: 125 MG, CYCLIC (DAILY ONCE A DAY FOR 21 DAYS THEN OFF 7 DAYS, THEN REPEAT)
     Route: 048
     Dates: start: 201803
  2. LETROZOLE. [Concomitant]
     Active Substance: LETROZOLE
     Dosage: UNK
     Dates: start: 201703
  3. IBRANCE [Suspect]
     Active Substance: PALBOCICLIB
     Indication: BREAST CANCER METASTATIC
     Dosage: 125 MG, UNK (ONCE)
     Dates: start: 201703

REACTIONS (1)
  - Memory impairment [Not Recovered/Not Resolved]
